FAERS Safety Report 24746871 (Version 3)
Quarter: 2025Q1

REPORT INFORMATION
  Report Type: Spontaneous
  Country: US (occurrence: US)
  Receive Date: 20241218
  Receipt Date: 20250102
  Transmission Date: 20250409
  Serious: Yes (Death, Hospitalization)
  Sender: KARYOPHARM THERAPEUTICS
  Company Number: US-KARYOPHARM-2024KPT001895

PATIENT

DRUGS (11)
  1. XPOVIO [Suspect]
     Active Substance: SELINEXOR
     Indication: Plasma cell myeloma
     Dosage: 60 MG, WEEKLY
     Route: 048
     Dates: start: 20241209, end: 20241229
  2. ACYCLOVIR [Concomitant]
     Active Substance: ACYCLOVIR
  3. CARVEDILOL [Concomitant]
     Active Substance: CARVEDILOL
  4. DARZALEX [Concomitant]
     Active Substance: DARATUMUMAB
  5. DECADRON [Concomitant]
     Active Substance: DEXAMETHASONE
  6. DIFICID [Concomitant]
     Active Substance: FIDAXOMICIN
  7. LACOSAMIDE [Concomitant]
     Active Substance: LACOSAMIDE
  8. LEVETIRACETAM [Concomitant]
     Active Substance: LEVETIRACETAM
  9. MIDODRINE [Concomitant]
     Active Substance: MIDODRINE
  10. PANTOPRAZOLE [Concomitant]
     Active Substance: PANTOPRAZOLE
  11. PROCHLORPERAZINE [Concomitant]
     Active Substance: PROCHLORPERAZINE

REACTIONS (6)
  - Death [Fatal]
  - COVID-19 [Unknown]
  - Diarrhoea [Not Recovered/Not Resolved]
  - Dehydration [Unknown]
  - Fatigue [Unknown]
  - Nausea [Unknown]

NARRATIVE: CASE EVENT DATE: 20241201
